FAERS Safety Report 10058011 (Version 1)
Quarter: 2014Q2

REPORT INFORMATION
  Report Type: Spontaneous
  Country: US (occurrence: None)
  Receive Date: 20140403
  Receipt Date: 20140403
  Transmission Date: 20141212
  Serious: Yes (Hospitalization, Other)
  Sender: FDA-Public Use
  Company Number: None

PATIENT
  Age: 79 Year
  Sex: Female
  Weight: 58.97 kg

DRUGS (3)
  1. RIVAROXABAN 15 MG JANSSEN [Suspect]
     Indication: ATRIAL FIBRILLATION
     Route: 048
     Dates: start: 20131022, end: 20140331
  2. XARELTO 15 MG [Concomitant]
  3. IRBESARTAN [Concomitant]

REACTIONS (4)
  - Epistaxis [None]
  - Haematemesis [None]
  - Haemoptysis [None]
  - Hypoxia [None]
